FAERS Safety Report 6116548-8 (Version None)
Quarter: 2009Q1

REPORT INFORMATION
  Report Type: 
  Country: None (occurrence: None)
  Receive Date: 20090314
  Receipt Date: 20081217
  Transmission Date: 20090719
  Serious: No
  Sender: FDA-Public Use
  Company Number: US-ABBOTT-08P-163-0493517-00

PATIENT
  Sex: Female
  Weight: 77.634 kg

DRUGS (7)
  1. HUMIRA [Suspect]
     Indication: RHEUMATOID ARTHRITIS
     Route: 058
     Dates: start: 20041201
  2. NATURAL MEDICATIONS [Concomitant]
     Indication: RHEUMATOID ARTHRITIS
     Dosage: UNKNOWN
     Route: 048
  3. FOLIC ACID [Concomitant]
     Indication: RHEUMATOID ARTHRITIS
     Dosage: UNKNOWN
  4. BENICAR [Concomitant]
     Indication: HYPERTENSION
     Dosage: UNKNOWN
  5. XANAX [Concomitant]
     Indication: ANXIETY
     Dosage: UNKNOWN
  6. VITAMIN B COMPLEX CAP [Concomitant]
     Indication: ANAEMIA
     Dosage: UNKNOWN
  7. MULTI-VITAMIN [Concomitant]
     Indication: VITAMIN SUPPLEMENTATION
     Dosage: UNKNOWN

REACTIONS (1)
  - PAIN [None]
